FAERS Safety Report 13016777 (Version 1)
Quarter: 2016Q4

REPORT INFORMATION
  Report Type: Spontaneous
  Country: US (occurrence: US)
  Receive Date: 20161208
  Receipt Date: 20161208
  Transmission Date: 20170207
  Serious: No
  Sender: FDA-Public Use
  Company Number: None

PATIENT
  Age: 43 Year
  Sex: Male

DRUGS (1)
  1. TOPROL XL [Suspect]
     Active Substance: METOPROLOL SUCCINATE
     Indication: PALPITATIONS
     Route: 048
     Dates: start: 20161001, end: 20161203

REACTIONS (6)
  - Headache [None]
  - Product quality issue [None]
  - Palpitations [None]
  - Paraesthesia [None]
  - Disease recurrence [None]
  - Drug effect decreased [None]

NARRATIVE: CASE EVENT DATE: 20161203
